FAERS Safety Report 6897236-7 (Version None)
Quarter: 2010Q3

REPORT INFORMATION
  Report Type: 
  Country: None (occurrence: None)
  Receive Date: 20100802
  Receipt Date: 20070423
  Transmission Date: 20110219
  Serious: No
  Sender: FDA-Public Use
  Company Number: US-PFIZER INC-2007033263

PATIENT
  Sex: Female
  Weight: 46 kg

DRUGS (4)
  1. LYRICA [Suspect]
     Indication: BACK PAIN
     Dates: start: 20070414, end: 20070421
  2. ALL OTHER THERAPEUTIC PRODUCTS [Concomitant]
  3. TENORMIN [Concomitant]
  4. POTASSIUM [Concomitant]

REACTIONS (1)
  - PAIN [None]
